FAERS Safety Report 7994379-1 (Version None)
Quarter: 2011Q4

REPORT INFORMATION
  Report Type: 
  Country: None (occurrence: None)
  Receive Date: 20111220
  Receipt Date: 20111207
  Transmission Date: 20120403
  Serious: Yes (Other)
  Sender: FDA-Public Use
  Company Number: DE-ELI_LILLY_AND_COMPANY-DE201112001726

PATIENT
  Age: 79 Year
  Sex: Female
  Weight: 50 kg

DRUGS (7)
  1. FORTEO [Suspect]
     Indication: OSTEOPOROSIS
     Dosage: UNK, QD
     Route: 058
     Dates: start: 20100322
  2. NITROGLYCERIN SPRAY [Concomitant]
  3. HEPARIN [Concomitant]
  4. VITAMIN D [Concomitant]
  5. CALCIUM [Concomitant]
  6. DIURETICS [Concomitant]
  7. MARCUMAR [Concomitant]
     Dosage: UNK
     Dates: start: 20040101

REACTIONS (4)
  - CYANOSIS [None]
  - CONTUSION [None]
  - CAROTID ARTERY STENOSIS [None]
  - FALL [None]
